FAERS Safety Report 25118731 (Version 1)
Quarter: 2025Q1

REPORT INFORMATION
  Report Type: Spontaneous
  Country: US (occurrence: US)
  Receive Date: 20250325
  Receipt Date: 20250325
  Transmission Date: 20250409
  Serious: Yes (Other)
  Sender: AMGEN
  Company Number: US-AMGEN-USASP2025054470

PATIENT
  Sex: Female

DRUGS (1)
  1. REPATHA [Suspect]
     Active Substance: EVOLOCUMAB
     Indication: Product used for unknown indication
     Route: 065
     Dates: start: 2021

REACTIONS (4)
  - Myocardial infarction [Unknown]
  - Vision blurred [Unknown]
  - Refusal of treatment by patient [Unknown]
  - Influenza [Unknown]

NARRATIVE: CASE EVENT DATE: 20221201
